FAERS Safety Report 17819885 (Version 1)
Quarter: 2020Q2

REPORT INFORMATION
  Report Type: Report from Study
  Country: None (occurrence: US)
  Receive Date: 20200524
  Receipt Date: 20200524
  Transmission Date: 20200714
  Serious: Yes (Other)
  Sender: FDA-Public Use
  Company Number: US-ABBVIE-20K-163-3235996-00

PATIENT
  Age: 55 Year
  Sex: Female
  Weight: 49.49 kg

DRUGS (6)
  1. VITAMIN D [Concomitant]
     Active Substance: VITAMIN D NOS
     Indication: VITAMIN SUPPLEMENTATION
     Route: 065
  2. HUMIRA [Suspect]
     Active Substance: ADALIMUMAB
     Indication: CROHN^S DISEASE
     Route: 058
     Dates: start: 2013
  3. HUMIRA [Suspect]
     Active Substance: ADALIMUMAB
     Route: 058
  4. CYMBALTA [Concomitant]
     Active Substance: DULOXETINE HYDROCHLORIDE
     Indication: GASTROINTESTINAL PAIN
     Route: 065
  5. TRAMADOL. [Concomitant]
     Active Substance: TRAMADOL
     Indication: GASTROINTESTINAL PAIN
     Route: 065
  6. ENTOCORT [Concomitant]
     Active Substance: BUDESONIDE
     Indication: GASTROINTESTINAL PAIN
     Route: 065

REACTIONS (11)
  - Malaise [Not Recovered/Not Resolved]
  - Fear [Recovering/Resolving]
  - Hypophagia [Recovering/Resolving]
  - Large intestinal stenosis [Not Recovered/Not Resolved]
  - Dry mouth [Recovered/Resolved]
  - Intestinal obstruction [Recovering/Resolving]
  - Procedural pain [Recovering/Resolving]
  - Device issue [Recovered/Resolved]
  - Gait disturbance [Recovering/Resolving]
  - Impaired healing [Recovering/Resolving]
  - Anxiety [Recovering/Resolving]

NARRATIVE: CASE EVENT DATE: 20200111
